FAERS Safety Report 24104160 (Version 3)
Quarter: 2024Q4

REPORT INFORMATION
  Report Type: Report from Study
  Country: CA (occurrence: CA)
  Receive Date: 20240717
  Receipt Date: 20241101
  Transmission Date: 20250114
  Serious: Yes (Hospitalization)
  Sender: JOHNSON AND JOHNSON
  Company Number: CA-JNJFOC-20240445421

PATIENT
  Age: 69 Year
  Sex: Female
  Weight: 113 kg

DRUGS (2)
  1. REMICADE [Suspect]
     Active Substance: INFLIXIMAB
     Indication: Colitis ulcerative
     Dosage: EXPIRY: 31-DEC-2026
     Route: 041
  2. REMICADE [Suspect]
     Active Substance: INFLIXIMAB
     Indication: Crohn^s disease
     Dosage: THERAPY START DATE REPORTED AS- 29-APR-2024
     Route: 041

REACTIONS (6)
  - Hospitalisation [Not Recovered/Not Resolved]
  - Cholecystitis infective [Unknown]
  - Sepsis [Unknown]
  - Inappropriate schedule of product administration [Unknown]
  - Product storage error [Unknown]
  - Off label use [Unknown]

NARRATIVE: CASE EVENT DATE: 20240101
